FAERS Safety Report 14327621 (Version 1)
Quarter: 2017Q4

REPORT INFORMATION
  Report Type: Spontaneous
  Country: PL (occurrence: PL)
  Receive Date: 20171227
  Receipt Date: 20171227
  Transmission Date: 20180321
  Serious: Yes (Death, Life-Threatening, Other)
  Sender: FDA-Public Use
  Company Number: PHHY2017PL192565

PATIENT
  Age: 80 Year
  Sex: Male

DRUGS (9)
  1. PREDNISONE. [Suspect]
     Active Substance: PREDNISONE
     Indication: ANTI-NEUTROPHIL CYTOPLASMIC ANTIBODY POSITIVE VASCULITIS
     Dosage: UNK
     Route: 065
  2. AMOXICILLIN + CLAVULANIC ACID [Concomitant]
     Active Substance: AMOXICILLIN\CLAVULANIC ACID
     Indication: PSEUDOMONAS INFECTION
     Route: 065
  3. CEFTAZIDIME. [Concomitant]
     Active Substance: CEFTAZIDIME
     Indication: PSEUDOMONAS INFECTION
     Route: 065
  4. FLUTAMIDE. [Concomitant]
     Active Substance: FLUTAMIDE
     Indication: PROSTATE CANCER
     Route: 065
  5. LEVOFLOXACIN. [Concomitant]
     Active Substance: LEVOFLOXACIN
     Indication: PSEUDOMONAS INFECTION
     Route: 065
  6. CYCLOPHOSPHAMIDE. [Suspect]
     Active Substance: CYCLOPHOSPHAMIDE
     Indication: ANTI-NEUTROPHIL CYTOPLASMIC ANTIBODY POSITIVE VASCULITIS
     Dosage: 10 MG/KG, UNK
     Route: 042
  7. CLARITHROMYCIN. [Concomitant]
     Active Substance: CLARITHROMYCIN
     Indication: PSEUDOMONAS INFECTION
     Route: 065
  8. PREDNISONE. [Suspect]
     Active Substance: PREDNISONE
     Dosage: 60 MG, UNK
     Route: 065
  9. METHYLPREDNISOLONE. [Suspect]
     Active Substance: METHYLPREDNISOLONE
     Indication: ANTI-NEUTROPHIL CYTOPLASMIC ANTIBODY POSITIVE VASCULITIS
     Dosage: 3X1.0 G
     Route: 042

REACTIONS (12)
  - Renal failure [Unknown]
  - Aspergillus infection [Recovering/Resolving]
  - Fungal infection [Unknown]
  - Herpes zoster [Unknown]
  - Bacterial infection [Unknown]
  - Spinal vascular disorder [Fatal]
  - Nuclear magnetic resonance imaging abnormal [Fatal]
  - Cerebrovascular disorder [Fatal]
  - Drug ineffective [Unknown]
  - Lung infiltration [Unknown]
  - Lymphopenia [Unknown]
  - Candida infection [Unknown]
